FAERS Safety Report 18640382 (Version 1)
Quarter: 2020Q4

REPORT INFORMATION
  Report Type: Report from Study
  Country: US (occurrence: US)
  Receive Date: 20201221
  Receipt Date: 20201221
  Transmission Date: 20210114
  Serious: Yes (Other)
  Sender: FDA-Public Use
  Company Number: US-EMD SERONO-E2B_80067771

PATIENT
  Age: 45 Year
  Sex: Female
  Weight: 118 kg

DRUGS (4)
  1. REBIF [Suspect]
     Active Substance: INTERFERON BETA-1A
     Route: 058
  2. REBIF [Suspect]
     Active Substance: INTERFERON BETA-1A
     Indication: MULTIPLE SCLEROSIS
     Route: 058
     Dates: start: 20170217, end: 20190110
  3. INSULIN [Suspect]
     Active Substance: INSULIN NOS
     Indication: LATENT AUTOIMMUNE DIABETES IN ADULTS
     Dates: start: 2017
  4. REBIF [Suspect]
     Active Substance: INTERFERON BETA-1A
     Route: 058

REACTIONS (6)
  - Pancreatic failure [Not Recovered/Not Resolved]
  - Latent autoimmune diabetes in adults [Not Recovered/Not Resolved]
  - Autoimmune disorder [Unknown]
  - Type 2 diabetes mellitus [Not Recovered/Not Resolved]
  - Premature menopause [Unknown]
  - Insulin resistance [Not Recovered/Not Resolved]

NARRATIVE: CASE EVENT DATE: 201704
